FAERS Safety Report 18373286 (Version 1)
Quarter: 2020Q4

REPORT INFORMATION
  Report Type: Spontaneous
  Country: US (occurrence: US)
  Receive Date: 20201012
  Receipt Date: 20201012
  Transmission Date: 20210114
  Serious: No
  Sender: FDA-Public Use
  Company Number: US-JUBILANT CADISTA PHARMACEUTICALS-2020JUB00125

PATIENT
  Age: 72 Year
  Sex: Female
  Weight: 96.75 kg

DRUGS (16)
  1. DILTIAZEM (MFR. ACTAVIS) [Concomitant]
  2. VENTOLIN [Concomitant]
     Active Substance: ALBUTEROL SULFATE
  3. AMOXICIL-CLAV (NORTHSTAR) (AMOXICILLIN\CLAVULANATE POTASSIUM) [Suspect]
     Active Substance: AMOXICILLIN\CLAVULANATE POTASSIUM
     Dosage: 1 TABLETS, 2X/DAY X 10 DAYS
  4. FUROSEMIDE (MFR. MYLAN) [Concomitant]
  5. NOVOLOG [Concomitant]
     Active Substance: INSULIN ASPART
     Dosage: UNK, AS NEEDED
  6. ALLOPURINOL. [Concomitant]
     Active Substance: ALLOPURINOL
  7. VICTOZA [Concomitant]
     Active Substance: LIRAGLUTIDE
  8. MONTELUKAST (MFR. DR. REDDY^S) [Concomitant]
  9. ALENDRONATE [Concomitant]
     Active Substance: ALENDRONATE SODIUM
  10. CLOPIDOGREL [Concomitant]
     Active Substance: CLOPIDOGREL BISULFATE
  11. ELIQUIS [Concomitant]
     Active Substance: APIXABAN
     Dosage: 5 MG, 2X/DAY
  12. SYMBICORT [Concomitant]
     Active Substance: BUDESONIDE\FORMOTEROL FUMARATE DIHYDRATE
  13. LANTUS [Concomitant]
     Active Substance: INSULIN GLARGINE
     Dosage: 45 U, 1X/DAY
  14. PANTOPRAZOLE (MFR. MYLAN) [Concomitant]
  15. PREDNISONE. [Suspect]
     Active Substance: PREDNISONE
     Indication: PNEUMONIA
     Dosage: 80 MG, 1X/DAY
     Dates: start: 2020, end: 2020
  16. PREDNISONE (MFR. ACTAVIS) [Concomitant]
     Dosage: 10 MG, 1X/DAY

REACTIONS (1)
  - Therapeutic product effect incomplete [Recovered/Resolved]

NARRATIVE: CASE EVENT DATE: 2020
